FAERS Safety Report 14442855 (Version 3)
Quarter: 2018Q2

REPORT INFORMATION
  Report Type: Spontaneous
  Country: DE (occurrence: DE)
  Receive Date: 20180125
  Receipt Date: 20180402
  Transmission Date: 20180711
  Serious: Yes (Hospitalization)
  Sender: FDA-Public Use
  Company Number: DE-PFIZER INC-2017110264

PATIENT
  Age: 92 Year
  Sex: Female

DRUGS (6)
  1. PANTOPRAZOL TAD [Concomitant]
     Active Substance: PANTOPRAZOLE SODIUM
     Dosage: 20 MG, UNK
  2. BISOPROLOL DEXCEL [Concomitant]
     Active Substance: BISOPROLOL FUMARATE
     Dosage: 5 MG, UNK
  3. HCT DEXCEL [Concomitant]
     Dosage: 12.5 MG, UNK
  4. LATANOPROST PFIZER [Suspect]
     Active Substance: LATANOPROST
     Dosage: 1 GTT, DAILY (1 DROP EACH EYE EVERY MORNING)
     Route: 047
     Dates: start: 2014
  5. AMLODIPIN (BESILAT) DEXCEL [Concomitant]
     Dosage: 5 MG, UNK
  6. IBUFLAM LICHTENSTEIN [Concomitant]
     Dosage: 600 MG, UNK

REACTIONS (22)
  - Lichen planus [Recovering/Resolving]
  - Ecchymosis [Unknown]
  - Haematoma [Recovering/Resolving]
  - Skin exfoliation [Recovering/Resolving]
  - Cyanosis [Unknown]
  - Ocular hyperaemia [Not Recovered/Not Resolved]
  - Hypoacusis [Unknown]
  - Erythema [Recovering/Resolving]
  - Lid sulcus deepened [Not Recovered/Not Resolved]
  - Pruritus [Recovering/Resolving]
  - Seborrhoeic dermatitis [Recovering/Resolving]
  - Rash [Not Recovered/Not Resolved]
  - Incorrect dose administered [Unknown]
  - Eyelid rash [Not Recovered/Not Resolved]
  - Rash papulosquamous [Recovering/Resolving]
  - Macule [Recovering/Resolving]
  - Peripheral swelling [Unknown]
  - Overdose [Unknown]
  - Product storage error [Unknown]
  - Product quality issue [Unknown]
  - Skin fissures [Not Recovered/Not Resolved]
  - Poor quality drug administered [Unknown]

NARRATIVE: CASE EVENT DATE: 2014
